FAERS Safety Report 10956437 (Version 6)
Quarter: 2015Q3

REPORT INFORMATION
  Report Type: Spontaneous
  Country: US (occurrence: US)
  Receive Date: 20150326
  Receipt Date: 20150731
  Transmission Date: 20151125
  Serious: Yes (Hospitalization, Other)
  Sender: FDA-Public Use
  Company Number: US-ASTRAZENECA-2015SE25520

PATIENT
  Age: 719 Month
  Sex: Female

DRUGS (1)
  1. LYNPARZA [Suspect]
     Active Substance: OLAPARIB
     Indication: OVARIAN CANCER
     Route: 048

REACTIONS (34)
  - Decreased appetite [Unknown]
  - Blood potassium decreased [Unknown]
  - Lung disorder [Unknown]
  - Atrial fibrillation [Unknown]
  - Pleural effusion [Unknown]
  - Anaemia [Unknown]
  - Red blood cell count decreased [Unknown]
  - Blood creatinine increased [Unknown]
  - Ovarian cancer stage IV [Unknown]
  - Serum ferritin increased [Unknown]
  - Blood magnesium decreased [Unknown]
  - White blood cell count decreased [Unknown]
  - Respiratory tract congestion [Unknown]
  - Pneumonia [Unknown]
  - Haematocrit decreased [Unknown]
  - Breast cancer [Unknown]
  - Cough [Unknown]
  - Hypokalaemia [Unknown]
  - Malaise [Unknown]
  - Blood alkaline phosphatase increased [Unknown]
  - Blood chloride decreased [Unknown]
  - Blood sodium decreased [Unknown]
  - Abnormal behaviour [Unknown]
  - Viral infection [Unknown]
  - Haemoglobin decreased [Unknown]
  - Blood urea increased [Unknown]
  - Depression [Unknown]
  - Bronchitis [Recovering/Resolving]
  - Hyponatraemia [Unknown]
  - Influenza [Recovering/Resolving]
  - Thrombocytopenia [Unknown]
  - Gastrooesophageal reflux disease [Unknown]
  - Blood glucose increased [Unknown]
  - Restless legs syndrome [Unknown]

NARRATIVE: CASE EVENT DATE: 201503
